FAERS Safety Report 5415389-4 (Version None)
Quarter: 2007Q3

REPORT INFORMATION
  Report Type: 
  Country: None (occurrence: None)
  Receive Date: 20070813
  Receipt Date: 20070813
  Transmission Date: 20080115
  Serious: Yes (Hospitalization, Other)
  Sender: FDA-Public Use
  Company Number: None

PATIENT
  Age: 42 Year
  Sex: Female

DRUGS (1)
  1. LISINOPRIL [Suspect]
     Dosage: 20 MG Q24H PO
     Route: 048

REACTIONS (4)
  - ANGIOEDEMA [None]
  - GASTROINTESTINAL DISORDER [None]
  - PRURITUS [None]
  - RASH MACULAR [None]
